FAERS Safety Report 4659301-4 (Version None)
Quarter: 2005Q2

REPORT INFORMATION
  Report Type: 
  Country: None (occurrence: None)
  Receive Date: 20050502
  Receipt Date: 20050308
  Transmission Date: 20051028
  Serious: No
  Sender: FDA-Public Use
  Company Number: 200511813US

PATIENT
  Sex: Female

DRUGS (2)
  1. KETEK [Suspect]
     Indication: SINUSITIS
  2. AZITHROMYCIN (ZITHROMAX Z-PACK) [Concomitant]

REACTIONS (5)
  - DIARRHOEA [None]
  - DYSPEPSIA [None]
  - ERUCTATION [None]
  - INSOMNIA [None]
  - SLEEP TERROR [None]
